FAERS Safety Report 9495107 (Version 2)
Quarter: 2013Q3

REPORT INFORMATION
  Report Type: Spontaneous
  Country: DE (occurrence: DE)
  Receive Date: 20130903
  Receipt Date: 20130903
  Transmission Date: 20140515
  Serious: Yes (Other)
  Sender: FDA-Public Use
  Company Number: DE-UCBSA-009994

PATIENT
  Age: 25 Year
  Sex: Male
  Weight: 82 kg

DRUGS (3)
  1. VIMPAT [Suspect]
     Indication: EPILEPSY
     Route: 048
     Dates: start: 20091209, end: 20100409
  2. CARBAMAZEPIN [Concomitant]
     Route: 048
     Dates: start: 1990, end: 201107
  3. LAMOTRIGINE [Concomitant]
     Dates: start: 201107

REACTIONS (1)
  - Aggression [Recovered/Resolved]
